FAERS Safety Report 6719261-9 (Version None)
Quarter: 2010Q2

REPORT INFORMATION
  Report Type: 
  Country: None (occurrence: None)
  Receive Date: 20100507
  Receipt Date: 20100425
  Transmission Date: 20101027
  Serious: Yes (Hospitalization)
  Sender: FDA-Public Use
  Company Number: KV201000057

PATIENT
  Age: 69 Year
  Sex: Female
  Weight: 85.1 kg

DRUGS (9)
  1. MORPHINE SULFATE [Suspect]
     Indication: PAIN
     Dosage: 30 MG, TID, ORAL
     Route: 048
     Dates: start: 20070130, end: 20070718
  2. CLONAZPAM (CLONAZEPAM) [Concomitant]
  3. TRICOR /00499301/ (FENOFIBRATE) [Concomitant]
  4. BACLOFEN [Concomitant]
  5. LISINOPRIL [Concomitant]
  6. SIMVASTATIN [Concomitant]
  7. LEXAPRO [Concomitant]
  8. KLONOPIN [Concomitant]
  9. SENOKOT /00142201/ (SENNA ALEXANDRIA) [Concomitant]

REACTIONS (48)
  - ABDOMINAL PAIN [None]
  - ANAEMIA [None]
  - AORTIC ANEURYSM [None]
  - ARTHRALGIA [None]
  - ASTHENIA [None]
  - BACK PAIN [None]
  - BLOOD URINE PRESENT [None]
  - BRONCHITIS [None]
  - CELLULITIS [None]
  - CEREBRAL INFARCTION [None]
  - CHILLS [None]
  - COMPARTMENT SYNDROME [None]
  - CONFUSIONAL STATE [None]
  - CONSTIPATION [None]
  - DECREASED APPETITE [None]
  - DEEP VEIN THROMBOSIS [None]
  - DELIRIUM [None]
  - DIARRHOEA [None]
  - DRUG INEFFECTIVE [None]
  - DRUG TOLERANCE INCREASED [None]
  - FALL [None]
  - FATIGUE [None]
  - HAEMATURIA [None]
  - HALLUCINATION [None]
  - HIP FRACTURE [None]
  - HYPOAESTHESIA [None]
  - HYPOKALAEMIA [None]
  - INSOMNIA [None]
  - LEG AMPUTATION [None]
  - LETHARGY [None]
  - MEMORY IMPAIRMENT [None]
  - MUSCLE ATROPHY [None]
  - NASAL CONGESTION [None]
  - NAUSEA [None]
  - OEDEMA PERIPHERAL [None]
  - OSTEOPENIA [None]
  - PAIN IN EXTREMITY [None]
  - PELVIC PAIN [None]
  - PLEURISY [None]
  - PNEUMONIA [None]
  - PNEUMONITIS [None]
  - POOR QUALITY SLEEP [None]
  - PULMONARY EMBOLISM [None]
  - PYREXIA [None]
  - SINUS HEADACHE [None]
  - SINUSITIS [None]
  - TROPONIN INCREASED [None]
  - WEIGHT INCREASED [None]
